FAERS Safety Report 6183782-0 (Version None)
Quarter: 2009Q2

REPORT INFORMATION
  Report Type: 
  Country: None (occurrence: None)
  Receive Date: 20090508
  Receipt Date: 20090326
  Transmission Date: 20091009
  Serious: No
  Sender: FDA-Public Use
  Company Number: A0776699A

PATIENT
  Age: 75 Year
  Sex: Female

DRUGS (4)
  1. ALTABAX [Suspect]
     Indication: PITYRIASIS LICHENOIDES ET VARIOLIFORMIS ACUTA
     Dosage: 1APP TWICE PER DAY
     Route: 061
     Dates: start: 20081201, end: 20090201
  2. LUBRIDERM [Concomitant]
  3. EUCERIN [Concomitant]
  4. SOAP [Concomitant]

REACTIONS (2)
  - ERYTHEMA [None]
  - PRURITUS [None]
